FAERS Safety Report 23861784 (Version 1)
Quarter: 2024Q2

REPORT INFORMATION
  Report Type: Spontaneous
  Country: FR (occurrence: FR)
  Receive Date: 20240516
  Receipt Date: 20240516
  Transmission Date: 20240716
  Serious: Yes (Other)
  Sender: FDA-Public Use
  Company Number: None

PATIENT
  Age: 56 Year
  Sex: Male

DRUGS (2)
  1. CODEINE [Suspect]
     Active Substance: CODEINE
     Indication: Product used for unknown indication
     Dosage: 1 CP MATIN, MIDI, 2 CP SOIR ET NUIT
     Route: 048
     Dates: start: 202311
  2. ACETAMINOPHEN [Suspect]
     Active Substance: ACETAMINOPHEN
     Indication: Product used for unknown indication
     Dosage: 1 CP MATIN, MIDI, 2 CP SOIR ET NUIT
     Route: 048
     Dates: start: 202311

REACTIONS (1)
  - Drug use disorder [Not Recovered/Not Resolved]
